FAERS Safety Report 7091752-3 (Version None)
Quarter: 2010Q4

REPORT INFORMATION
  Report Type: 
  Country: None (occurrence: None)
  Receive Date: 20101109
  Receipt Date: 20101029
  Transmission Date: 20110411
  Serious: Yes (Hospitalization)
  Sender: FDA-Public Use
  Company Number: JP-WATSON-2010-11990

PATIENT
  Sex: Male

DRUGS (6)
  1. RAPAFLO [Suspect]
     Indication: DYSURIA
     Dosage: 4 MG, BID
     Route: 048
     Dates: start: 20100715, end: 20100829
  2. RAPAFLO [Suspect]
     Indication: BENIGN PROSTATIC HYPERPLASIA
     Dosage: 4 MG, BID
     Route: 048
     Dates: start: 20100526, end: 20100713
  3. UBRETID [Suspect]
     Indication: BENIGN PROSTATIC HYPERPLASIA
     Dosage: 5 MG, DAILY
     Route: 048
     Dates: start: 20100728, end: 20100829
  4. LOXONIN                            /00890701/ [Concomitant]
     Dosage: 180 MG, UNK
     Route: 048
     Dates: start: 20100629, end: 20100715
  5. CEFAMEZIN ALPHA [Concomitant]
     Dosage: 2 G, UNK
     Route: 041
     Dates: start: 20100714, end: 20100717
  6. GASTER                             /00706001/ [Concomitant]
     Dosage: 20 MG, UNK
     Route: 042
     Dates: start: 20100714, end: 20100716

REACTIONS (1)
  - EOSINOPHILIC PNEUMONIA ACUTE [None]
